FAERS Safety Report 18224610 (Version 1)
Quarter: 2020Q3

REPORT INFORMATION
  Report Type: Spontaneous
  Country: US (occurrence: US)
  Receive Date: 20200902
  Receipt Date: 20200902
  Transmission Date: 20201103
  Serious: Yes (Other)
  Sender: FDA-Public Use
  Company Number: US-ACELLA PHARMACEUTICALS, LLC-2089348

PATIENT
  Age: 68 Year
  Sex: Female
  Weight: 60.46 kg

DRUGS (1)
  1. NP THYROID [Suspect]
     Active Substance: LEVOTHYROXINE\LIOTHYRONINE
     Indication: HYPOTHYROIDISM
     Route: 048
     Dates: start: 2018, end: 202006

REACTIONS (9)
  - Large intestinal obstruction [Recovered/Resolved]
  - Asthenia [Recovered/Resolved]
  - Decreased appetite [Recovered/Resolved]
  - Colitis [Recovered/Resolved]
  - Fatigue [Recovered/Resolved]
  - Intestinal polypectomy [Recovered/Resolved]
  - Lung neoplasm malignant [Not Recovered/Not Resolved]
  - Faecaloma [Recovered/Resolved]
  - Intestinal polyp [Recovered/Resolved]

NARRATIVE: CASE EVENT DATE: 202003
